FAERS Safety Report 7389893-6 (Version None)
Quarter: 2011Q2

REPORT INFORMATION
  Report Type: 
  Country: None (occurrence: None)
  Receive Date: 20110401
  Receipt Date: 20081105
  Transmission Date: 20111010
  Serious: Yes (Death, Other)
  Sender: FDA-Public Use
  Company Number: US-BAYER-2010-006024

PATIENT
  Sex: Female

DRUGS (11)
  1. DOBUTREX [Concomitant]
     Dosage: UNK
     Route: 042
     Dates: start: 19961118
  2. LANOXIN [Concomitant]
     Route: 048
  3. ACETYLSALICYLIC ACID SRT [Concomitant]
     Route: 048
  4. LEVOPHED [Concomitant]
     Dosage: UNK
     Route: 042
     Dates: start: 19961118
  5. LASIX [Concomitant]
     Dosage: UNK
     Route: 042
     Dates: start: 19961118
  6. HEPARIN SODIUM [Concomitant]
     Dosage: UNK
     Route: 042
     Dates: start: 19961118
  7. TRASYLOL [Suspect]
     Indication: ATRIAL SEPTAL DEFECT REPAIR
     Dosage: 1 ML TEST DOSE
     Route: 042
     Dates: start: 19961118
  8. PAVULON [Concomitant]
     Dosage: UNK
     Route: 042
     Dates: start: 19961118
  9. TRASYLOL [Suspect]
     Dosage: 200 ML LOADING DOSE
     Route: 042
  10. TRASYLOL [Suspect]
     Dosage: INFUSION 50CC/HR
     Route: 042
     Dates: end: 19961118
  11. VERSED [Concomitant]
     Dosage: UNK
     Route: 042
     Dates: start: 19961118

REACTIONS (14)
  - RENAL FAILURE [None]
  - RENAL INJURY [None]
  - FEAR [None]
  - RENAL IMPAIRMENT [None]
  - STRESS [None]
  - UNEVALUABLE EVENT [None]
  - DEATH [None]
  - EMOTIONAL DISTRESS [None]
  - PAIN [None]
  - INJURY [None]
  - ANHEDONIA [None]
  - DEPRESSION [None]
  - MULTI-ORGAN FAILURE [None]
  - ANXIETY [None]
